FAERS Safety Report 23768841 (Version 1)
Quarter: 2024Q2

REPORT INFORMATION
  Report Type: Spontaneous
  Country: US (occurrence: None)
  Receive Date: 20240420
  Receipt Date: 20240420
  Transmission Date: 20240715
  Serious: No
  Sender: FDA-Public Use
  Company Number: None

PATIENT
  Age: 83 Year
  Sex: Male
  Weight: 59.87 kg

DRUGS (1)
  1. ENOXAPARIN [Suspect]
     Active Substance: ENOXAPARIN
     Indication: Deep vein thrombosis
     Dosage: 40 MG EVERY DAY INTRAMUSCULAR?
     Route: 030
     Dates: start: 20230628, end: 20230703

REACTIONS (2)
  - Chronic obstructive pulmonary disease [None]
  - Thrombocytopenia [None]

NARRATIVE: CASE EVENT DATE: 20230703
